FAERS Safety Report 8822369 (Version 2)
Quarter: 2013Q1

REPORT INFORMATION
  Report Type: Spontaneous
  Country: IE (occurrence: IE)
  Receive Date: 20121003
  Receipt Date: 20130117
  Transmission Date: 20140127
  Serious: Yes (Other)
  Sender: FDA-Public Use
  Company Number: IE-MPIJNJ-2012-05989

PATIENT
  Sex: 0

DRUGS (12)
  1. VELCADE [Suspect]
     Indication: PLASMA CELL MYELOMA
     Dosage: 1.3 MG/M2, UNK
     Route: 065
     Dates: start: 20110713, end: 201110
  2. VELCADE [Suspect]
     Dosage: 1.3 MG/M2, UNK
     Route: 065
     Dates: start: 201206, end: 201209
  3. MOBIC [Concomitant]
  4. LENALIDOMIDE [Concomitant]
  5. TRAMADOL [Concomitant]
     Dosage: 50 MG, PRN
  6. DEXAMETHASONE [Concomitant]
  7. NEXIUM                             /01479302/ [Concomitant]
  8. LYRICA [Concomitant]
     Dosage: UNK, PRN
  9. ASPIRIN [Concomitant]
     Dosage: 75 MG, UNK
  10. SEPTRIN [Concomitant]
     Dosage: 400 MG, UNK
  11. SOLPADOL [Concomitant]
     Dosage: UNK, PRN
  12. LOSEC                              /00661201/ [Concomitant]
     Dosage: 40 MG, UNK

REACTIONS (2)
  - Joint swelling [Not Recovered/Not Resolved]
  - Neuropathy peripheral [Not Recovered/Not Resolved]
